FAERS Safety Report 19246749 (Version 2)
Quarter: 2021Q2

REPORT INFORMATION
  Report Type: Spontaneous
  Country: IT (occurrence: IT)
  Receive Date: 20210512
  Receipt Date: 20210518
  Transmission Date: 20210717
  Serious: Yes (Hospitalization)
  Sender: FDA-Public Use
  Company Number: IT-STRIDES ARCOLAB LIMITED-2021SP005282

PATIENT
  Age: 26 Year
  Sex: Male

DRUGS (15)
  1. IFOSFAMIDE. [Concomitant]
     Active Substance: IFOSFAMIDE
     Indication: HODGKIN^S DISEASE
     Dosage: UNK 2 CYCLES
     Route: 065
  2. DACARBAZINE. [Suspect]
     Active Substance: DACARBAZINE
     Indication: HODGKIN^S DISEASE
     Dosage: UNK (ABVD), 6 CYCLES
     Route: 065
  3. CYCLOPHOSPHAMIDE. [Suspect]
     Active Substance: CYCLOPHOSPHAMIDE
     Indication: HODGKIN^S DISEASE
     Dosage: UNK, (ESC?BEACOPP)
     Route: 065
  4. PREDNISOLONE. [Suspect]
     Active Substance: PREDNISOLONE
     Indication: HODGKIN^S DISEASE
     Dosage: UNK, (ESC?BEACOPP)
     Route: 065
  5. BLEOMYCIN [Suspect]
     Active Substance: BLEOMYCIN SULFATE
     Indication: HODGKIN^S DISEASE
     Dosage: UNK, 6 CYCLES (ABVD)
     Route: 065
  6. VINCRISTINE [Suspect]
     Active Substance: VINCRISTINE
     Indication: HODGKIN^S DISEASE
     Dosage: UNK, (ESC?BEACOPP)
     Route: 065
  7. DOXORUBICIN [Suspect]
     Active Substance: DOXORUBICIN
     Dosage: UNK, CYCLICAL (ESC?BEACOPP)
     Route: 065
  8. ETOPOSIDE. [Suspect]
     Active Substance: ETOPOSIDE
     Indication: HODGKIN^S DISEASE
     Dosage: UNK (ESC?BEACOPP)
     Route: 065
  9. DOXORUBICIN [Suspect]
     Active Substance: DOXORUBICIN
     Indication: HODGKIN^S DISEASE
     Dosage: UNK, 6 CYCLES (ABVD)
     Route: 065
  10. FILGRASTIM [Concomitant]
     Active Substance: FILGRASTIM
     Indication: PROPHYLAXIS
     Dosage: UNK
     Route: 065
  11. VINORELBINE [Concomitant]
     Active Substance: VINORELBINE TARTRATE
     Indication: HODGKIN^S DISEASE
     Dosage: UNK, 2 CYCLES
     Route: 065
  12. BLEOMYCIN [Suspect]
     Active Substance: BLEOMYCIN SULFATE
     Dosage: UNK, (ESC?BEACOPP)
     Route: 065
  13. PROCARBAZINE [Suspect]
     Active Substance: PROCARBAZINE
     Indication: HODGKIN^S DISEASE
     Dosage: UNK (ESC?BEACOPP)
     Route: 065
  14. GEMCITABINE. [Concomitant]
     Active Substance: GEMCITABINE
     Indication: HODGKIN^S DISEASE
     Dosage: UNK, 2 CYCLES
     Route: 065
  15. VINBLASTINE [Suspect]
     Active Substance: VINBLASTINE
     Indication: HODGKIN^S DISEASE
     Dosage: UNK, 6 CYCLES (ABVD)
     Route: 065

REACTIONS (1)
  - Febrile neutropenia [Recovered/Resolved]
